FAERS Safety Report 14930693 (Version 2)
Quarter: 2018Q2

REPORT INFORMATION
  Report Type: Spontaneous
  Country: NL (occurrence: NL)
  Receive Date: 20180523
  Receipt Date: 20180609
  Transmission Date: 20180711
  Serious: Yes (Death, Life-Threatening, Hospitalization)
  Sender: FDA-Public Use
  Company Number: NL-TEVA-2018-NL-896395

PATIENT
  Age: 60 Year
  Sex: Female

DRUGS (12)
  1. PARACETAMOL 1000MG [Concomitant]
     Dosage: ZONODIG 4X PER DAG 1 TABLET
     Route: 065
  2. FOLIUMZUUR 5MG [Concomitant]
     Dosage: .7143 MILLIGRAM DAILY; 1X PER WEEK 1 TABLET
     Route: 065
  3. PREDNISOLON 5MG [Concomitant]
     Dosage: 5 MILLIGRAM DAILY; 1X PER DAG 1 TABLET
     Route: 065
  4. TRAMGESIC MGA 200MG [Concomitant]
     Dosage: 200 MILLIGRAM DAILY; 1X PER DAG 1 TABLET
     Route: 065
  5. RISEDRONAT 35MG [Concomitant]
     Dosage: 5 MILLIGRAM DAILY; 1X PER WEEK 1 TABLET
     Route: 065
  6. CALCIUM/VITAMINE D3 500MG/800IE [Concomitant]
     Dosage: 1 DOSAGE FORMS DAILY; ^S AVONDS 1 TABLET
     Route: 065
  7. METHOTREXATE 2,5MG [Concomitant]
     Dosage: 1X PER WEEK 5 TABLETS
     Route: 065
  8. MELOXICAM. [Suspect]
     Active Substance: MELOXICAM
     Indication: RHEUMATOID ARTHRITIS
     Dosage: 15 MILLIGRAM DAILY; 1X PER DAG 1 TABLET
     Route: 065
     Dates: start: 20180209, end: 20180320
  9. AMITRIPTYLINE 25MG [Concomitant]
     Active Substance: AMITRIPTYLINE
     Dosage: 25 MILLIGRAM DAILY; FOR THE NIGHT 1 TABLET
     Route: 065
  10. PANTOPRAZOL 40MG [Concomitant]
     Active Substance: PANTOPRAZOLE SODIUM
     Dosage: 40 MILLIGRAM DAILY; 1X PER DAG 1 TABLET
     Route: 065
  11. SIMVASTATINE 40MG [Concomitant]
     Dosage: 40 MILLIGRAM DAILY; ^S AVONDS 1 TABLET
     Route: 065
  12. AMLODIPINE 2,5 MG [Concomitant]
     Dosage: 2.5 MILLIGRAM DAILY; 1X PER DAG 1 TABLET
     Route: 065

REACTIONS (4)
  - Heart rate decreased [Recovered/Resolved]
  - Death [Fatal]
  - Chest discomfort [Recovered/Resolved]
  - Hypotension [Recovered/Resolved]

NARRATIVE: CASE EVENT DATE: 201803
